FAERS Safety Report 5959371-7 (Version None)
Quarter: 2008Q4

REPORT INFORMATION
  Report Type: 
  Country: None (occurrence: None)
  Receive Date: 20081117
  Receipt Date: 20081105
  Transmission Date: 20090506
  Serious: Yes (Hospitalization)
  Sender: FDA-Public Use
  Company Number: 2008-04220

PATIENT
  Age: 71 Year
  Sex: Female
  Weight: 30 kg

DRUGS (8)
  1. VELCADE [Suspect]
     Indication: MULTIPLE MYELOMA
     Dosage: 1.4 MG, INTRAVENOUS
     Route: 042
     Dates: start: 20081009, end: 20081021
  2. LANSOPRAZOLE [Concomitant]
  3. DIFLUCAN [Concomitant]
  4. SULFAMETHOXAZOLE AND TRIMETHOPRIM [Concomitant]
  5. CLARITHROMYCIN [Concomitant]
  6. CALONAL (PARACETAMOL) [Concomitant]
  7. AMOBAN (ZOPICLONE) [Concomitant]
  8. NOVAMIN (PROCHLORPERAZINE) [Concomitant]

REACTIONS (3)
  - BLOOD AMYLASE INCREASED [None]
  - CONSTIPATION [None]
  - ILEUS [None]
